FAERS Safety Report 6161713-7 (Version None)
Quarter: 2009Q2

REPORT INFORMATION
  Report Type: 
  Country: None (occurrence: None)
  Receive Date: 20090421
  Receipt Date: 20090414
  Transmission Date: 20091009
  Serious: Yes (Hospitalization)
  Sender: FDA-Public Use
  Company Number: BR-BAYER-200911313LA

PATIENT
  Age: 62 Year
  Sex: Female

DRUGS (9)
  1. BETAFERON [Suspect]
     Indication: MULTIPLE SCLEROSIS
     Dosage: BETAJECT
     Route: 058
     Dates: start: 20040301, end: 20081222
  2. BETAFERON [Suspect]
     Dosage: BETAJECT
     Route: 058
     Dates: start: 20090322
  3. BETAFERON [Suspect]
     Dosage: BETAJECT
     Route: 058
     Dates: start: 20090102, end: 20090115
  4. OMEPRAZOLE [Concomitant]
     Indication: GASTRIC DISORDER
     Dosage: TOTAL DAILY DOSE: 40 MG  UNIT DOSE: 40 MG
     Route: 048
     Dates: start: 20090108
  5. CEFADROXIL [Concomitant]
     Indication: ANIMAL BITE
     Route: 048
     Dates: start: 20090213, end: 20090220
  6. ACECLOFENAC [Concomitant]
     Indication: ANIMAL BITE
     Route: 048
     Dates: start: 20090213, end: 20090220
  7. ATENOLOL [Concomitant]
     Indication: HYPERTENSION
     Route: 048
     Dates: start: 20081201
  8. ANTITETANUS VACCINE [Concomitant]
     Indication: ANIMAL BITE
     Route: 065
  9. ANTIRABIES VACCINE [Concomitant]
     Indication: ANIMAL BITE
     Route: 065

REACTIONS (10)
  - ANIMAL BITE [None]
  - DEPRESSION [None]
  - GAIT DISTURBANCE [None]
  - HYPERTENSION [None]
  - INFLAMMATION [None]
  - INJECTION SITE PAIN [None]
  - LIMB INJURY [None]
  - MULTIPLE SCLEROSIS [None]
  - PAIN IN EXTREMITY [None]
  - UPPER LIMB FRACTURE [None]
